FAERS Safety Report 23859885 (Version 1)
Quarter: 2024Q2

REPORT INFORMATION
  Report Type: Spontaneous
  Country: US (occurrence: US)
  Receive Date: 20240515
  Receipt Date: 20240515
  Transmission Date: 20240715
  Serious: No
  Sender: FDA-Public Use
  Company Number: US-BAUSCH-BL-2024-007253

PATIENT
  Sex: Female

DRUGS (2)
  1. GLUMETZA [Suspect]
     Active Substance: METFORMIN HYDROCHLORIDE
     Indication: Diabetes mellitus
     Dosage: EXTENDED RELEASE TABLET, BLUE COLORED GLUMETZA TABLETS
     Route: 065
     Dates: start: 2014
  2. GLUMETZA [Suspect]
     Active Substance: METFORMIN HYDROCHLORIDE
     Dosage: EXTENDED RELEASE TABLET, WHITE GLUMETZA TABLET, TAKING FOR A FEW YEARS
     Route: 065

REACTIONS (3)
  - Abdominal distension [Unknown]
  - Ill-defined disorder [Unknown]
  - Patient dissatisfaction with treatment [Unknown]
